FAERS Safety Report 7799971-5 (Version None)
Quarter: 2011Q4

REPORT INFORMATION
  Report Type: 
  Country: None (occurrence: None)
  Receive Date: 20111006
  Receipt Date: 20110926
  Transmission Date: 20120403
  Serious: Yes (Hospitalization, Other)
  Sender: FDA-Public Use
  Company Number: CA-JNJFOC-20110808885

PATIENT
  Sex: Female
  Weight: 86 kg

DRUGS (5)
  1. REMICADE [Suspect]
     Indication: CROHN'S DISEASE
     Dosage: 1ST INFUSION SINCE RE-STARTING INFLIXIMAB THERAPY
     Route: 042
  2. SOLU-CORTEF [Concomitant]
     Indication: PREMEDICATION
  3. BENADRYL [Concomitant]
     Indication: PREMEDICATION
  4. REMICADE [Suspect]
     Route: 042
     Dates: start: 20110926
  5. REMICADE [Suspect]
     Dosage: STOPPED INFLIXIMAB THERAPY FOR 31 WEEKS FOR PREGANCNY
     Route: 042

REACTIONS (4)
  - CAESAREAN SECTION [None]
  - INFUSION RELATED REACTION [None]
  - MATERNAL EXPOSURE DURING PREGNANCY [None]
  - DYSPNOEA [None]
